FAERS Safety Report 24200316 (Version 2)
Quarter: 2025Q1

REPORT INFORMATION
  Report Type: Spontaneous
  Country: DE (occurrence: DE)
  Receive Date: 20240812
  Receipt Date: 20250328
  Transmission Date: 20250408
  Serious: Yes (Other)
  Sender: DR REDDYS
  Company Number: None

PATIENT
  Age: 14 Month
  Sex: Male

DRUGS (29)
  1. LEVETIRACETAM [Suspect]
     Active Substance: LEVETIRACETAM
     Indication: Seizure prophylaxis
     Dosage: 20 MG/KG, QD, FORM DAY - 9 THROUGH DAY + 5
     Route: 065
  2. LEVETIRACETAM [Suspect]
     Active Substance: LEVETIRACETAM
     Dosage: 20 MG/KG, QD, FORM DAY - 9 THROUGH DAY + 5
     Route: 065
  3. THIOTEPA [Suspect]
     Active Substance: THIOTEPA
     Indication: Chronic granulomatous disease
     Dosage: 10 MG/KG/D ON DAY - 2
  4. THIOTEPA [Suspect]
     Active Substance: THIOTEPA
     Indication: Bone marrow conditioning regimen
     Dosage: 10 MG/KG/D ON DAY - 2
  5. THIOTEPA [Suspect]
     Active Substance: THIOTEPA
     Indication: Allogenic stem cell transplantation
  6. CEFOTAXIME [Suspect]
     Active Substance: CEFOTAXIME SODIUM
     Indication: Antibiotic therapy
     Route: 065
  7. CEFOTAXIME [Suspect]
     Active Substance: CEFOTAXIME SODIUM
     Route: 065
  8. LENOGRASTIM [Suspect]
     Active Substance: LENOGRASTIM
     Indication: Product used for unknown indication
     Dosage: 5 MG/KG/D FROM DAY + 5 FOR 6 CONSECUTIVE DAYS
  9. THYMOCYTE IMMUNE GLOBULIN NOS [Suspect]
     Active Substance: THYMOCYTE IMMUNE GLOBULIN NOS
     Indication: Allogenic stem cell transplantation
     Dosage: 20 MG/KG/D (DAY -11 TO DAY - 9)
     Route: 065
  10. BUSULFAN [Suspect]
     Active Substance: BUSULFAN
     Indication: Allogenic stem cell transplantation
     Route: 065
  11. BUSULFAN [Suspect]
     Active Substance: BUSULFAN
     Indication: Bone marrow conditioning regimen
     Route: 065
  12. BUSULFAN [Suspect]
     Active Substance: BUSULFAN
     Indication: Chronic granulomatous disease
  13. FLUDARABINE [Suspect]
     Active Substance: FLUDARABINE PHOSPHATE
     Indication: Allogenic stem cell transplantation
     Dosage: 30 MG/M2/D (DAY - 8 TO DAY - 4)
     Route: 065
  14. FLUDARABINE [Suspect]
     Active Substance: FLUDARABINE PHOSPHATE
     Indication: Chronic granulomatous disease
     Dosage: 30 MG/M2/D (DAY - 8 TO DAY - 4)
     Route: 065
  15. FLUDARABINE [Suspect]
     Active Substance: FLUDARABINE PHOSPHATE
     Indication: Bone marrow conditioning regimen
  16. GRAFALON [Suspect]
     Active Substance: LAPINE T-LYMPHOCYTE IMMUNE GLOBULIN
     Indication: Bone marrow conditioning regimen
     Dosage: 20 MG/KG, QD (DAY -11 TO DAY -9)
     Route: 065
  17. GRAFALON [Suspect]
     Active Substance: LAPINE T-LYMPHOCYTE IMMUNE GLOBULIN
     Indication: Allogenic stem cell transplantation
     Dosage: 20 MG/KG, QD (DAY -11 TO DAY -9)
     Route: 065
  18. GRAFALON [Suspect]
     Active Substance: LAPINE T-LYMPHOCYTE IMMUNE GLOBULIN
     Indication: Chronic granulomatous disease
  19. GRANULOCYTE COLONY-STIMULATING FACTOR NOS [Suspect]
     Active Substance: GRANULOCYTE COLONY-STIMULATING FACTOR NOS
     Indication: Product used for unknown indication
     Dosage: 5 MG/KG/D FROM DAY + 5 FOR 6 CONSECUTIVE DAYS
  20. GRANULOCYTE COLONY-STIMULATING FACTOR NOS [Suspect]
     Active Substance: GRANULOCYTE COLONY-STIMULATING FACTOR NOS
     Dosage: 5 MG/KG/D FROM DAY + 5 FOR 6 CONSECUTIVE DAYS
  21. METHYLPREDNISOLONE [Suspect]
     Active Substance: METHYLPREDNISOLONE
     Indication: Crohn^s disease
     Dosage: 20 MG/KG, QD, FROM DAY - 11 TO DAY -9
     Route: 065
  22. METHYLPREDNISOLONE [Suspect]
     Active Substance: METHYLPREDNISOLONE
     Dosage: 20 MG/KG, QD, FROM DAY - 11 TO DAY -9
     Route: 065
  23. METRONIDAZOLE [Suspect]
     Active Substance: METRONIDAZOLE
     Indication: Antibiotic therapy
  24. METRONIDAZOLE [Suspect]
     Active Substance: METRONIDAZOLE
     Route: 065
  25. CELLCEPT [Suspect]
     Active Substance: MYCOPHENOLATE MOFETIL
     Indication: Prophylaxis against graft versus host disease
     Dosage: 2 X 600 MG/M2/D FROM DAY + 1 UNTIL DAY + 28
  26. MYCOPHENOLATE MOFETIL [Suspect]
     Active Substance: MYCOPHENOLATE MOFETIL
     Indication: Prophylaxis against graft versus host disease
     Dosage: 2 X 600 MG/M2/D FROM DAY + 1 UNTIL DAY + 28
  27. HEPARIN [Concomitant]
     Active Substance: HEPARIN SODIUM
     Indication: Prophylaxis
  28. HEPARIN [Concomitant]
     Active Substance: HEPARIN SODIUM
     Route: 042
  29. AMPHOTERICIN B [Concomitant]
     Active Substance: AMPHOTERICIN B
     Indication: Antifungal prophylaxis
     Route: 042

REACTIONS (5)
  - Serratia sepsis [Unknown]
  - Pyrexia [Unknown]
  - Adenovirus infection [Unknown]
  - Venoocclusive liver disease [Unknown]
  - Serratia infection [Unknown]
